FAERS Safety Report 20404535 (Version 2)
Quarter: 2022Q1

REPORT INFORMATION
  Report Type: Report from Study
  Country: DE (occurrence: DE)
  Receive Date: 20220131
  Receipt Date: 20220208
  Transmission Date: 20220424
  Serious: Yes (Life-Threatening, Hospitalization)
  Sender: FDA-Public Use
  Company Number: DE-BAYER-2022A015004

PATIENT
  Age: 87 Year
  Sex: Male

DRUGS (1)
  1. VENTAVIS [Suspect]
     Active Substance: ILOPROST
     Indication: Pulmonary arterial hypertension
     Dosage: 4-5 NEBULIZATIONS
     Route: 055
     Dates: start: 20200520

REACTIONS (3)
  - Angina pectoris [Unknown]
  - Condition aggravated [Unknown]
  - Inappropriate schedule of product administration [Unknown]

NARRATIVE: CASE EVENT DATE: 20220122
